FAERS Safety Report 4356768-6 (Version None)
Quarter: 2004Q2

REPORT INFORMATION
  Report Type: 
  Country: None (occurrence: None)
  Receive Date: 20040507
  Receipt Date: 20040427
  Transmission Date: 20050107
  Serious: Yes (Hospitalization, Other)
  Sender: FDA-Public Use
  Company Number: 2004028587

PATIENT
  Age: 80 Year
  Sex: Female
  Weight: 72.5755 kg

DRUGS (7)
  1. NEURONTIN [Suspect]
     Indication: POST HERPETIC NEURALGIA
     Dosage: UNKNOWN (UNKNOWN), ORAL
     Route: 048
     Dates: start: 20000101
  2. SIMVASTATIN [Concomitant]
  3. GLICLAZIDE (GLICLAZIDE) [Concomitant]
  4. LANSOPRAZOLE [Concomitant]
  5. LATANOPROST [Concomitant]
  6. COSOPT [Concomitant]
  7. AMITRIPTYLINE HYDROCHLORIDE [Concomitant]

REACTIONS (3)
  - ANAEMIA [None]
  - FAECES DISCOLOURED [None]
  - GASTROINTESTINAL HAEMORRHAGE [None]
